FAERS Safety Report 9359831 (Version 1)
Quarter: 2013Q2

REPORT INFORMATION
  Report Type: Spontaneous
  Country: GB (occurrence: GB)
  Receive Date: 20130621
  Receipt Date: 20130621
  Transmission Date: 20140414
  Serious: Yes (Life-Threatening)
  Sender: FDA-Public Use
  Company Number: GB-AMGEN-GBRSP2013043429

PATIENT
  Age: 64 Year
  Sex: Female

DRUGS (5)
  1. ENBREL [Suspect]
     Indication: RHEUMATOID ARTHRITIS
     Dosage: 50 MG, UNK
     Route: 058
     Dates: start: 201201, end: 201305
  2. LEFLUNOMIDE [Concomitant]
     Dosage: ONGOING
     Route: 048
     Dates: start: 2010
  3. ALENDRONIC ACID [Concomitant]
     Dosage: 70 MG, WEEKLY
     Route: 048
  4. CALCICHEW [Concomitant]
     Dosage: 2 DF, 1X/DAY
     Route: 048
  5. OMEPRAZOLE [Concomitant]
     Dosage: 20 MG, 1X/DAY
     Route: 048

REACTIONS (2)
  - Diffuse large B-cell lymphoma [Not Recovered/Not Resolved]
  - Lymphadenopathy [Not Recovered/Not Resolved]
